FAERS Safety Report 21714935 (Version 1)
Quarter: 2022Q4

REPORT INFORMATION
  Report Type: Spontaneous
  Country: US (occurrence: US)
  Receive Date: 20221212
  Receipt Date: 20221212
  Transmission Date: 20230112
  Serious: Yes (Other)
  Sender: FDA-Public Use
  Company Number: US-BAYER-2022P026618

PATIENT
  Age: 16 Year
  Sex: Male

DRUGS (3)
  1. KOVALTRY [Suspect]
     Active Substance: ANTIHEMOPHILIC FACTOR, HUMAN RECOMBINANT
     Indication: Product use in unapproved indication
     Dosage: 3000 IU, BIW - INFUSE ~ 3000 UNITS (+/-10%) SLOW IVPUSH ONCE DAILY ON MONDAY AND WEDNESDAY
     Route: 040
  2. KOVALTRY [Suspect]
     Active Substance: ANTIHEMOPHILIC FACTOR, HUMAN RECOMBINANT
     Indication: Product use in unapproved indication
     Dosage: 3500 IU, OW - SLOW IVPUSH 3500 UNITS (+/-10%) ONCE DAILY ON FRIDAY
     Route: 040
  3. KOVALTRY [Suspect]
     Active Substance: ANTIHEMOPHILIC FACTOR, HUMAN RECOMBINANT
     Indication: Product use in unapproved indication
     Dosage: 2 DF, ONCE - TO TREAT ADVERSE EVENT
     Route: 042

REACTIONS (1)
  - Dental operation [None]

NARRATIVE: CASE EVENT DATE: 20221205
